FAERS Safety Report 4880128-2 (Version None)
Quarter: 2006Q1

REPORT INFORMATION
  Report Type: 
  Country: None (occurrence: None)
  Receive Date: 20060113
  Receipt Date: 20060102
  Transmission Date: 20060701
  Serious: Yes (Hospitalization)
  Sender: FDA-Public Use
  Company Number: PHBS2006NO00455

PATIENT
  Age: 60 Year
  Sex: Male

DRUGS (5)
  1. ZOMETA [Suspect]
     Indication: OSTEOPOROSIS
     Dosage: UNK, QMO
     Dates: end: 20051001
  2. ZOLOFT [Concomitant]
     Dosage: 50 MG, BID
     Route: 048
  3. NEXIUM [Concomitant]
     Dosage: 20 MG, BID
     Route: 048
  4. DIOVAN [Concomitant]
     Dosage: 80 MG, QD
     Route: 048
  5. DURAGESIC-100 [Concomitant]
     Dosage: 100 UG/D
     Route: 062

REACTIONS (5)
  - BONE DEBRIDEMENT [None]
  - HAEMORRHAGE [None]
  - IMPAIRED HEALING [None]
  - OSTEONECROSIS [None]
  - TOOTH EXTRACTION [None]
